FAERS Safety Report 18432304 (Version 3)
Quarter: 2020Q4

REPORT INFORMATION
  Report Type: Report from Study
  Country: FR (occurrence: FR)
  Receive Date: 20201027
  Receipt Date: 20201215
  Transmission Date: 20210114
  Serious: Yes (Hospitalization)
  Sender: FDA-Public Use
  Company Number: FR-EXELIXIS-XL18420034279

PATIENT

DRUGS (3)
  1. LEVOTHYROXINE. [Concomitant]
     Active Substance: LEVOTHYROXINE
     Indication: HYPOTHYROIDISM
     Dosage: UNK
  2. FELODIPINE. [Concomitant]
     Active Substance: FELODIPINE
     Indication: HYPERTENSION
     Dosage: UNK
  3. XL184 [Suspect]
     Active Substance: CABOZANTINIB
     Indication: CERVIX CARCINOMA
     Dosage: 60 MG, QD
     Route: 048
     Dates: start: 20200821, end: 20201001

REACTIONS (2)
  - Acute kidney injury [Recovered/Resolved]
  - Thrombotic microangiopathy [Recovered/Resolved]

NARRATIVE: CASE EVENT DATE: 20201006
